FAERS Safety Report 18915968 (Version 1)
Quarter: 2021Q1

REPORT INFORMATION
  Report Type: Spontaneous
  Country: US (occurrence: US)
  Receive Date: 20210219
  Receipt Date: 20210219
  Transmission Date: 20210420
  Serious: No
  Sender: FDA-Public Use
  Company Number: US-AKCEA THERAPEUTICS-2020IS001653

PATIENT
  Age: 60 Year
  Sex: Male

DRUGS (2)
  1. TEGSEDI [Suspect]
     Active Substance: INOTERSEN SODIUM
     Indication: HEREDITARY NEUROPATHIC AMYLOIDOSIS
     Route: 058
     Dates: start: 20201211
  2. ISSD (INTEGRATED SYRINGE SAFETY DEVICE) [Suspect]
     Active Substance: DEVICE

REACTIONS (2)
  - Injection site erythema [Recovered/Resolved]
  - Injection site pain [Recovered/Resolved]

NARRATIVE: CASE EVENT DATE: 20201211
